FAERS Safety Report 19489414 (Version 1)
Quarter: 2021Q3

REPORT INFORMATION
  Report Type: Spontaneous
  Country: DE (occurrence: DE)
  Receive Date: 20210703
  Receipt Date: 20210703
  Transmission Date: 20211014
  Serious: Yes (Hospitalization)
  Sender: FDA-Public Use
  Company Number: DE-TEVA-2021-DE-1928368

PATIENT
  Age: 82 Year
  Sex: Female
  Weight: 89 kg

DRUGS (13)
  1. BISOPROLOL [Suspect]
     Active Substance: BISOPROLOL
     Dosage: 10 MILLIGRAM DAILY;  1?0?1?0
  2. INSULIN DETEMIR [Suspect]
     Active Substance: INSULIN DETEMIR
     Dosage: 32 DOSAGE FORMS DAILY; 1 IU, 0?0?32?0
     Route: 058
  3. METAMIZOL [Concomitant]
     Active Substance: METAMIZOLE SODIUM
     Dosage: 500 MG, AS NEEDED
     Route: 048
  4. TORASEMID [Concomitant]
     Active Substance: TORSEMIDE
     Dosage: 20 MILLIGRAM DAILY; 1?1?0?0
     Route: 048
  5. URAPIDIL [Concomitant]
     Active Substance: URAPIDIL
     Dosage: 60 MILLIGRAM DAILY; 1?0?1?0
     Route: 048
  6. RAMIPRIL. [Concomitant]
     Active Substance: RAMIPRIL
     Dosage: 10 MILLIGRAM DAILY; 1?0?1?0
     Route: 048
  7. ATORVASTATIN [Concomitant]
     Active Substance: ATORVASTATIN
     Dosage: 80 MILLIGRAM DAILY; 0?0?1?0
     Route: 048
  8. ACETYLSALICYLSAURE [Concomitant]
     Active Substance: ASPIRIN
     Dosage: 100 MILLIGRAM DAILY; 1?0?0?0
     Route: 048
  9. INSULIN LISPRO [Suspect]
     Active Substance: INSULIN LISPRO
     Dosage: NEED
     Route: 058
  10. AMLODIPIN [Concomitant]
     Active Substance: AMLODIPINE BESYLATE
     Dosage: 10 MILLIGRAM DAILY; 1?0?1?0
     Route: 048
  11. INSULIN GLULISIN [Suspect]
     Active Substance: INSULIN GLULISINE
     Dosage: 1 IU, 18?13?16?0
     Route: 058
  12. PANTOPRAZOL [Concomitant]
     Active Substance: PANTOPRAZOLE SODIUM
     Dosage: 40 MILLIGRAM DAILY; 1?0?0?0
     Route: 048
  13. TILIDINE/NALOXONE [Concomitant]
     Active Substance: NALOXONE HYDROCHLORIDE\TILIDINE HYDROCHLORIDE
     Dosage: 1 DOSAGE FORMS DAILY; 4|50 MG, 0?0?1?0
     Route: 048

REACTIONS (5)
  - Product prescribing error [Unknown]
  - Medication error [Unknown]
  - Hypoglycaemia [Unknown]
  - Product administration error [Unknown]
  - Depressed level of consciousness [Unknown]
